FAERS Safety Report 6445009-1 (Version None)
Quarter: 2009Q4

REPORT INFORMATION
  Report Type: 
  Country: None (occurrence: None)
  Receive Date: 20091110
  Receipt Date: 20091005
  Transmission Date: 20100525
  Serious: No
  Sender: FDA-Public Use
  Company Number: 1000009257

PATIENT
  Sex: Female

DRUGS (6)
  1. SAVELLA [Suspect]
     Indication: FIBROMYALGIA
     Dosage: 12.5 MG (12.5 MG, 1 IN 1 D), ORAL, 25 MG (12.5 MG, 2 IN 1 D), ORAL
     Route: 048
     Dates: start: 20091003, end: 20091003
  2. SAVELLA [Suspect]
     Indication: FIBROMYALGIA
     Dosage: 12.5 MG (12.5 MG, 1 IN 1 D), ORAL, 25 MG (12.5 MG, 2 IN 1 D), ORAL
     Route: 048
     Dates: start: 20091004
  3. TRAMADOL HCL [Suspect]
     Indication: FIBROMYALGIA
     Dates: start: 20060101, end: 20091002
  4. EFFEXOR [Suspect]
     Indication: FIBROMYALGIA
     Dates: start: 20060101, end: 20091002
  5. CARTIA XT [Concomitant]
  6. VICODIN [Concomitant]

REACTIONS (5)
  - DIZZINESS [None]
  - FEELING COLD [None]
  - HEADACHE [None]
  - HYPERHIDROSIS [None]
  - NAUSEA [None]
